FAERS Safety Report 7207165-7 (Version None)
Quarter: 2011Q1

REPORT INFORMATION
  Report Type: 
  Country: None (occurrence: None)
  Receive Date: 20110103
  Receipt Date: 20101229
  Transmission Date: 20110831
  Serious: Yes (Hospitalization)
  Sender: FDA-Public Use
  Company Number: CO-ROCHE-730250

PATIENT
  Sex: Female

DRUGS (1)
  1. ACTEMRA [Suspect]
     Indication: RHEUMATOID ARTHRITIS
     Dosage: FREQUENCY: Q28DAYS, DATE OF LAST INFUSION: 28 SEPTEMBER 2010
     Route: 042
     Dates: start: 20100318, end: 20101201

REACTIONS (3)
  - ARTHRALGIA [None]
  - CEREBROVASCULAR ACCIDENT [None]
  - BRONCHITIS [None]
